FAERS Safety Report 16251530 (Version 1)
Quarter: 2019Q2

REPORT INFORMATION
  Report Type: Spontaneous
  Country: US (occurrence: US)
  Receive Date: 20190427
  Receipt Date: 20190427
  Transmission Date: 20190711
  Serious: Yes (Other)
  Sender: FDA-Public Use
  Company Number: None

PATIENT
  Age: 48 Year
  Sex: Male
  Weight: 89.1 kg

DRUGS (4)
  1. IBUPROFEN 200MG [Concomitant]
     Active Substance: IBUPROFEN
  2. B12 500MCG [Concomitant]
  3. VITAMIN C1000MG [Concomitant]
  4. ATENOLOL 25MG TAB [Suspect]
     Active Substance: ATENOLOL
     Indication: HYPERTENSION
     Dosage: ?          QUANTITY:1 TABLET(S);?
     Route: 048
     Dates: start: 20190416

REACTIONS (7)
  - Withdrawal syndrome [None]
  - Product complaint [None]
  - Product formulation issue [None]
  - Blood pressure increased [None]
  - Headache [None]
  - Drug ineffective [None]
  - Heart rate increased [None]

NARRATIVE: CASE EVENT DATE: 20190416
